FAERS Safety Report 4841389-9 (Version None)
Quarter: 2005Q4

REPORT INFORMATION
  Report Type: 
  Country: None (occurrence: None)
  Receive Date: 20051130
  Receipt Date: 20051004
  Transmission Date: 20060501
  Serious: Yes (Other)
  Sender: FDA-Public Use
  Company Number: US-MERCK-0510USA02311

PATIENT
  Age: 45 Year
  Sex: Male
  Weight: 64 kg

DRUGS (3)
  1. VIOXX [Suspect]
     Indication: PROSTATISM
     Route: 048
  2. VIOXX [Suspect]
     Route: 048
  3. VIOXX [Suspect]
     Route: 048

REACTIONS (2)
  - MYOCARDIAL INFARCTION [None]
  - OVERDOSE [None]
